FAERS Safety Report 19747818 (Version 1)
Quarter: 2021Q3

REPORT INFORMATION
  Report Type: Spontaneous
  Country: US (occurrence: US)
  Receive Date: 20210823
  Receipt Date: 20210823
  Transmission Date: 20211014
  Serious: No
  Sender: FDA-Public Use
  Company Number: None

PATIENT
  Age: 79 Year
  Sex: Female
  Weight: 96.75 kg

DRUGS (16)
  1. WARFARIN [Concomitant]
     Active Substance: WARFARIN
  2. FISH OIL [Concomitant]
     Active Substance: FISH OIL
  3. ASPIRIN 81 [Concomitant]
     Active Substance: ASPIRIN
  4. LATANOPROST. [Concomitant]
     Active Substance: LATANOPROST
  5. FUROSEMIDE. [Concomitant]
     Active Substance: FUROSEMIDE
  6. FAMOTIDINE. [Concomitant]
     Active Substance: FAMOTIDINE
  7. LOSARTAN. [Concomitant]
     Active Substance: LOSARTAN
  8. MAGNESIUM OXIDE. [Concomitant]
     Active Substance: MAGNESIUM OXIDE
  9. ACETAMINOPHEN. [Concomitant]
     Active Substance: ACETAMINOPHEN
  10. CARVEDILOL. [Concomitant]
     Active Substance: CARVEDILOL
  11. HYDROXYZINE PAMOATE. [Concomitant]
     Active Substance: HYDROXYZINE PAMOATE
  12. SIMVASTATIN. [Concomitant]
     Active Substance: SIMVASTATIN
  13. MULTIVITAMIN [Concomitant]
     Active Substance: VITAMINS
  14. ENOXAPARIN [Suspect]
     Active Substance: ENOXAPARIN
     Indication: ATRIAL FIBRILLATION
     Dosage: ?          QUANTITY:1 DF DOSAGE FORM;?
     Route: 058
  15. VENTOLIN [Concomitant]
     Active Substance: ALBUTEROL SULFATE
  16. CALCIUM [Concomitant]
     Active Substance: CALCIUM

REACTIONS (2)
  - Injection site haemorrhage [None]
  - Haematoma [None]

NARRATIVE: CASE EVENT DATE: 20210819
